FAERS Safety Report 24985018 (Version 1)
Quarter: 2025Q1

REPORT INFORMATION
  Report Type: Spontaneous
  Country: US (occurrence: US)
  Receive Date: 20250219
  Receipt Date: 20250219
  Transmission Date: 20250408
  Serious: No
  Sender: LEO PHARM
  Company Number: US-LEO Pharma-377669

PATIENT
  Age: 40 Year
  Sex: Female

DRUGS (2)
  1. ADBRY [Suspect]
     Active Substance: TRALOKINUMAB-LDRM
     Indication: Dermatitis atopic
     Route: 058
     Dates: start: 202412
  2. ADBRY [Suspect]
     Active Substance: TRALOKINUMAB-LDRM
     Indication: Dermatitis atopic
     Dosage: THEN 300MG (1 PEN) EVERY 2 WEEKS STARTING ON DAY 15 AS DIRECTED.
     Route: 058

REACTIONS (2)
  - Injection site rash [Unknown]
  - Nasopharyngitis [Unknown]
